FAERS Safety Report 17680099 (Version 2)
Quarter: 2020Q2

REPORT INFORMATION
  Report Type: Spontaneous
  Country: US (occurrence: US)
  Receive Date: 20200417
  Receipt Date: 20200423
  Transmission Date: 20200714
  Serious: Yes (Hospitalization)
  Sender: FDA-Public Use
  Company Number: US-MYLANLABS-2020M1039280

PATIENT
  Age: 70 Year
  Sex: Male

DRUGS (1)
  1. CLOPIDOGREL [Suspect]
     Active Substance: CLOPIDOGREL BISULFATE
     Indication: THROMBOSIS PROPHYLAXIS
     Dosage: POST-SURGERY, HE RECEIVED FOUR DOSES
     Route: 048

REACTIONS (3)
  - Accidental exposure to product [Recovered/Resolved]
  - Spinal cord compression [Recovered/Resolved]
  - Spinal subarachnoid haemorrhage [Recovered/Resolved]
